FAERS Safety Report 17143468 (Version 1)
Quarter: 2019Q4

REPORT INFORMATION
  Report Type: Spontaneous
  Country: PF (occurrence: FR)
  Receive Date: 20191211
  Receipt Date: 20191211
  Transmission Date: 20200122
  Serious: Yes (Hospitalization)
  Sender: FDA-Public Use
  Company Number: PF-AMERICAN REGENT INC-20191062

PATIENT
  Age: 38 Year
  Sex: Female
  Weight: 60 kg

DRUGS (3)
  1. ONDANSETRON [Suspect]
     Active Substance: ONDANSETRON
     Indication: PROCEDURAL NAUSEA
     Dosage: 4 MG, 1D 2 DAYS
     Route: 042
     Dates: start: 20190425, end: 20190426
  2. VENOFER [Suspect]
     Active Substance: IRON SUCROSE
     Indication: BLOOD LOSS ANAEMIA
     Dosage: 300 MG, 1 TOTAL 1 DAYS
     Route: 042
     Dates: start: 20190426, end: 20190426
  3. XENETIX [Suspect]
     Active Substance: IOBITRIDOL
     Indication: COMPUTERISED TOMOGRAM
     Dosage: 120 MG, 1 TOTAL 1 DAYS
     Route: 042
     Dates: start: 20190426, end: 20190426

REACTIONS (2)
  - Rash [Recovered/Resolved]
  - Pyrexia [Recovered/Resolved]

NARRATIVE: CASE EVENT DATE: 20190426
